FAERS Safety Report 8289601-0 (Version None)
Quarter: 2012Q2

REPORT INFORMATION
  Report Type: 
  Country: None (occurrence: None)
  Receive Date: 20120417
  Receipt Date: 20120413
  Transmission Date: 20120825
  Serious: Yes (Other)
  Sender: FDA-Public Use
  Company Number: PHHY2012BR032101

PATIENT
  Sex: Female

DRUGS (5)
  1. ACTONEL [Concomitant]
     Indication: OSTEOPOROSIS
     Dosage: 1 DF, QW
  2. OSTEONUTRI [Concomitant]
     Indication: OSTEOPOROSIS
     Dosage: 1 DF, DAILY
  3. DIOVAN [Suspect]
     Dosage: 160 MG, DAILY
     Route: 048
     Dates: start: 20120308
  4. DIOVAN [Suspect]
     Indication: HYPERTENSION
     Dosage: 80 MG, DAILY
     Route: 048
  5. SYNTHROID [Concomitant]
     Indication: HYPOTHYROIDISM
     Dosage: 1 DF, DAILY

REACTIONS (3)
  - BLOOD PRESSURE INCREASED [None]
  - FALL [None]
  - HIP FRACTURE [None]
